FAERS Safety Report 14355163 (Version 1)
Quarter: 2018Q1

REPORT INFORMATION
  Report Type: Spontaneous
  Country: AU (occurrence: AU)
  Receive Date: 20180105
  Receipt Date: 20180105
  Transmission Date: 20180509
  Serious: Yes (Other)
  Sender: FDA-Public Use
  Company Number: AU-ELI_LILLY_AND_COMPANY-AU201801000815

PATIENT
  Age: 74 Year
  Sex: Male

DRUGS (8)
  1. TERIPARATIDE [Suspect]
     Active Substance: TERIPARATIDE
     Indication: OSTEOPOROSIS
     Dosage: UNK, UNKNOWN
     Route: 065
  2. CALCIUM CITRATE [Concomitant]
     Active Substance: CALCIUM CITRATE
     Indication: OSTEOPOROSIS
     Dosage: UNK, UNKNOWN
     Route: 065
  3. CLONAZEPAM. [Concomitant]
     Active Substance: CLONAZEPAM
     Dosage: UNK, UNKNOWN
     Route: 065
  4. BENSERAZIDE [Concomitant]
     Active Substance: BENSERAZIDE
     Dosage: UNK, UNKNOWN
     Route: 065
  5. ESOMEPRAZOLE [Concomitant]
     Active Substance: ESOMEPRAZOLE
     Dosage: UNK, UNKNOWN
     Route: 065
  6. CARBIDOPA. [Concomitant]
     Active Substance: CARBIDOPA
     Dosage: UNK, UNKNOWN
     Route: 065
  7. LEVODOPA [Concomitant]
     Active Substance: LEVODOPA
     Dosage: UNK, UNKNOWN
     Route: 065
  8. SOTALOL. [Concomitant]
     Active Substance: SOTALOL
     Dosage: UNK, UNKNOWN
     Route: 065

REACTIONS (1)
  - Dystrophic calcification [Recovered/Resolved]
